FAERS Safety Report 9661164 (Version 1)
Quarter: 2013Q4

REPORT INFORMATION
  Report Type: Spontaneous
  Country: US (occurrence: None)
  Receive Date: 20131030
  Receipt Date: 20131030
  Transmission Date: 20140711
  Serious: Yes (Death)
  Sender: FDA-Public Use
  Company Number: UTC-039665

PATIENT
  Age: 55 Year
  Sex: Female
  Weight: 60 kg

DRUGS (2)
  1. REMODULIN (10 MILLIGRAM/MILLILITERS INJECTION FOR INFUSION) (TREPROSTINIL SODIUM) [Suspect]
     Indication: PULMONARY ARTERIAL HYPERTENSION
     Dosage: 148.32 UG/KG (0.103 UG/KG, 1 IN 1MIN) SUBCUTANEOUS
     Route: 058
     Dates: start: 20120305
  2. COUMADIN (WARFARIN) [Concomitant]

REACTIONS (1)
  - Death [None]
